FAERS Safety Report 8558216-9 (Version None)
Quarter: 2012Q3

REPORT INFORMATION
  Report Type: 
  Country: None (occurrence: None)
  Receive Date: 20120727
  Receipt Date: 20120727
  Transmission Date: 20120928
  Serious: Yes (Death)
  Sender: FDA-Public Use
  Company Number: None

PATIENT
  Age: 40 Year
  Sex: Female

DRUGS (6)
  1. ISENTRESS [Suspect]
     Indication: HIV INFECTION
     Dates: start: 20120301, end: 20120601
  2. ZITHROMAX [Suspect]
     Indication: HIV INFECTION
     Dates: start: 20120301, end: 20120601
  3. NORVIR [Suspect]
     Indication: HIV INFECTION
     Dates: start: 20120301, end: 20120601
  4. BACTRIM [Suspect]
     Indication: HIV INFECTION
     Dates: start: 20120301, end: 20120601
  5. VIREAD [Suspect]
     Indication: HIV INFECTION
     Dates: start: 20120301, end: 20120601
  6. PREZISTA [Suspect]
     Indication: HIV INFECTION
     Dates: start: 20120301, end: 20120601

REACTIONS (1)
  - TREATMENT NONCOMPLIANCE [None]
